FAERS Safety Report 10952763 (Version 1)
Quarter: 2015Q1

REPORT INFORMATION
  Report Type: Spontaneous
  Country: US (occurrence: US)
  Receive Date: 20150325
  Receipt Date: 20150325
  Transmission Date: 20150721
  Serious: Yes (Other)
  Sender: FDA-Public Use
  Company Number: US-GE HEALTHCARE MEDICAL DIAGNOSTICS-VISP-PR-1503S-0083

PATIENT
  Age: 29 Year
  Sex: Female
  Weight: 77.18 kg

DRUGS (7)
  1. VISIPAQUE [Suspect]
     Active Substance: IODIXANOL
     Indication: PAIN
  2. MORPHINE [Concomitant]
     Active Substance: MORPHINE
  3. VISIPAQUE [Suspect]
     Active Substance: IODIXANOL
     Indication: DYSPNOEA
     Route: 042
     Dates: start: 20150320, end: 20150320
  4. VISIPAQUE [Suspect]
     Active Substance: IODIXANOL
     Indication: CHOLECYSTECTOMY
  5. VISIPAQUE [Suspect]
     Active Substance: IODIXANOL
     Indication: DIAGNOSTIC PROCEDURE
  6. ZOFRAN [Concomitant]
     Active Substance: ONDANSETRON HYDROCHLORIDE
  7. NORMAL SALINE [Concomitant]
     Active Substance: SODIUM CHLORIDE

REACTIONS (1)
  - Urticaria [Unknown]

NARRATIVE: CASE EVENT DATE: 20150320
